FAERS Safety Report 4907341-X (Version None)
Quarter: 2006Q1

REPORT INFORMATION
  Report Type: 
  Country: None (occurrence: None)
  Receive Date: 20060208
  Receipt Date: 20060208
  Transmission Date: 20060701
  Serious: Yes (Life-Threatening, Hospitalization, Disabling, Other)
  Sender: FDA-Public Use
  Company Number: None

PATIENT
  Age: 14 Year
  Sex: Female
  Weight: 56.6996 kg

DRUGS (1)
  1. ZOLOFT [Suspect]
     Indication: DEPRESSION
     Dosage: 50 MG  DAILY  PO
     Route: 048
     Dates: start: 20051014, end: 20051214

REACTIONS (8)
  - ABNORMAL BEHAVIOUR [None]
  - AKATHISIA [None]
  - ALANINE AMINOTRANSFERASE INCREASED [None]
  - ASPARTATE AMINOTRANSFERASE INCREASED [None]
  - MALAISE [None]
  - OVERDOSE [None]
  - RESTLESSNESS [None]
  - SELF INJURIOUS BEHAVIOUR [None]
